FAERS Safety Report 10975063 (Version 1)
Quarter: 2015Q1

REPORT INFORMATION
  Report Type: Spontaneous
  Country: None (occurrence: None)
  Receive Date: 20150226
  Receipt Date: 20150226
  Transmission Date: 20150721
  Serious: No
  Sender: FDA-Public Use
  Company Number: TPA2010A03444

PATIENT
  Age: 54 Year
  Sex: Male
  Weight: 98.8 kg

DRUGS (14)
  1. SOTALOL (SOTALOL) [Concomitant]
     Active Substance: SOTALOL
  2. DICYCLOMINE [Concomitant]
     Active Substance: DICYCLOMINE HYDROCHLORIDE
  3. QUINAPRIL (QUINAPRIL) [Concomitant]
  4. LOVAZA (ALL OTHER THERAPEUTIC PRODUCTS) [Concomitant]
  5. TRICOR [Concomitant]
     Active Substance: FENOFIBRATE
  6. POTASSIUM (POTASSIUM) [Concomitant]
     Active Substance: POTASSIUM
  7. ULORIC [Suspect]
     Active Substance: FEBUXOSTAT
     Indication: GOUT
     Route: 048
     Dates: start: 2008
  8. WARFARIN (WARFARIN) [Concomitant]
     Active Substance: WARFARIN
  9. TEGRETOL [Concomitant]
     Active Substance: CARBAMAZEPINE
  10. PRILOSEC (OMEPRAZOLE) [Concomitant]
     Active Substance: OMEPRAZOLE MAGNESIUM
  11. CRESTOR [Concomitant]
     Active Substance: ROSUVASTATIN CALCIUM
  12. DIGOXIN (DIGOXIN) [Concomitant]
     Active Substance: DIGOXIN
  13. LASIX [Concomitant]
     Active Substance: FUROSEMIDE
  14. BENICAR [Concomitant]
     Active Substance: OLMESARTAN MEDOXOMIL

REACTIONS (1)
  - Gout [None]

NARRATIVE: CASE EVENT DATE: 200811
